FAERS Safety Report 15633570 (Version 2)
Quarter: 2018Q4

REPORT INFORMATION
  Report Type: Spontaneous
  Country: US (occurrence: US)
  Receive Date: 20181119
  Receipt Date: 20181128
  Transmission Date: 20190205
  Serious: Yes (Death, Life-Threatening, Hospitalization, Other)
  Sender: FDA-Public Use
  Company Number: US-UNITED THERAPEUTICS-UNT-2018-018327

PATIENT
  Age: 15 Year
  Sex: Female
  Weight: 29.25 kg

DRUGS (3)
  1. LETAIRIS [Concomitant]
     Active Substance: AMBRISENTAN
     Indication: PRODUCT USED FOR UNKNOWN INDICATION
     Dosage: UNK
     Route: 065
  2. REMODULIN [Suspect]
     Active Substance: TREPROSTINIL
     Indication: PULMONARY ARTERIAL HYPERTENSION
     Dosage: 0.16 ?G/KG, CONTINUING
     Route: 041
     Dates: start: 20161028, end: 20181114
  3. ADCIRCA [Concomitant]
     Active Substance: TADALAFIL
     Indication: PULMONARY ARTERIAL HYPERTENSION
     Dosage: UNK
     Route: 065

REACTIONS (8)
  - Pulmonary hypertension [Fatal]
  - Gingival bleeding [Unknown]
  - Pulmonary artery thrombosis [Fatal]
  - Pulmonary embolism [Fatal]
  - Respiratory failure [Fatal]
  - Platelet dysfunction [Fatal]
  - Thrombocytopenia [Fatal]
  - Abdominal pain upper [Fatal]

NARRATIVE: CASE EVENT DATE: 2018
